FAERS Safety Report 12053058 (Version 1)
Quarter: 2016Q1

REPORT INFORMATION
  Report Type: Spontaneous
  Country: US (occurrence: US)
  Receive Date: 20160209
  Receipt Date: 20160209
  Transmission Date: 20160526
  Serious: No
  Sender: FDA-Public Use
  Company Number: US-ENDO PHARMACEUTICALS INC.-2015-003830

PATIENT
  Sex: Male

DRUGS (2)
  1. FORTESTA [Suspect]
     Active Substance: TESTOSTERONE
     Indication: BLOOD TESTOSTERONE DECREASED
     Dosage: APPLY TWO PUMPS TO EACH OUTER THIGH DAILY
     Route: 061
     Dates: start: 2013, end: 20151027
  2. FORTESTA [Suspect]
     Active Substance: TESTOSTERONE
     Dosage: APPLY TWO PUMPS TO EACH INNER THIGH DAILY
     Route: 061
     Dates: start: 20151028

REACTIONS (2)
  - Libido increased [Unknown]
  - Drug administered at inappropriate site [Recovered/Resolved]

NARRATIVE: CASE EVENT DATE: 2013
